FAERS Safety Report 8852205 (Version 1)
Quarter: 2012Q4

REPORT INFORMATION
  Report Type: 
  Country: US (occurrence: US)
  Receive Date: 20121022
  Receipt Date: 20121022
  Transmission Date: 20130627
  Serious: No
  Sender: FDA-Public Use
  Company Number: US-B.I. PHARMACEUTICALS,INC./RIDGEFIELD-2012-BP-23911BP

PATIENT
  Sex: Male
  Weight: 86 kg

DRUGS (9)
  1. SPIRIVA [Suspect]
     Indication: CHRONIC OBSTRUCTIVE PULMONARY DISEASE
     Dosage: 18 mcg
     Route: 055
  2. COUMADIN [Concomitant]
     Dosage: 5 mg
     Route: 048
  3. PLAVIX [Concomitant]
     Indication: ANTIPLATELET THERAPY
     Dosage: 75 mg
     Route: 048
  4. LISINOPRIL [Concomitant]
     Dosage: 2.5 mg
     Route: 048
  5. PEPCID [Concomitant]
     Dosage: 40 mg
     Route: 048
  6. SIMVASTATIN [Concomitant]
     Indication: BLOOD CHOLESTEROL INCREASED
     Dosage: 25 mg
     Route: 048
  7. CARVEDILOL [Concomitant]
     Indication: CARDIAC DISORDER
     Dates: start: 2010
  8. ASPIRIN [Concomitant]
     Dosage: 325 mg
     Route: 048
  9. MULTIVITAMIN [Concomitant]
     Route: 048

REACTIONS (6)
  - Abdominal discomfort [Not Recovered/Not Resolved]
  - Decreased appetite [Not Recovered/Not Resolved]
  - Abnormal loss of weight [Not Recovered/Not Resolved]
  - Fatigue [Not Recovered/Not Resolved]
  - Insomnia [Not Recovered/Not Resolved]
  - Dyspnoea [Not Recovered/Not Resolved]
